FAERS Safety Report 5875230-2 (Version None)
Quarter: 2008Q3

REPORT INFORMATION
  Report Type: 
  Country: None (occurrence: None)
  Receive Date: 20080909
  Receipt Date: 20080825
  Transmission Date: 20090109
  Serious: Yes (Hospitalization)
  Sender: FDA-Public Use
  Company Number: CA-GENENTECH-229729

PATIENT
  Sex: Male
  Weight: 69.7 kg

DRUGS (7)
  1. BEVACIZUMAB [Suspect]
     Indication: COLON CANCER
     Dosage: 523 MG, Q3W
     Route: 042
     Dates: start: 20060809
  2. CAPECITABINE [Suspect]
     Indication: COLON CANCER
     Dosage: 1800 MG, BID
     Route: 048
     Dates: start: 20060809
  3. OXALIPLATIN [Suspect]
     Indication: COLON CANCER
     Dosage: 229 MG, Q3W
     Route: 042
     Dates: start: 20060809
  4. FLUOROURACIL [Suspect]
     Indication: COLON CANCER
     Dosage: UNK
     Route: 042
  5. LEUCOVORIN CALCIUM [Suspect]
     Indication: COLON CANCER
     Dosage: UNK
     Route: 042
  6. ZOCOR [Concomitant]
     Indication: DRUG USE FOR UNKNOWN INDICATION
     Dates: start: 19960615
  7. ADALAT [Concomitant]
     Indication: DRUG USE FOR UNKNOWN INDICATION
     Dates: start: 19960615

REACTIONS (4)
  - DIARRHOEA [None]
  - ILEUS PARALYTIC [None]
  - PNEUMONIA [None]
  - STAPHYLOCOCCAL SEPSIS [None]
